FAERS Safety Report 25333563 (Version 1)
Quarter: 2025Q2

REPORT INFORMATION
  Report Type: Report from Study
  Country: CH (occurrence: CH)
  Receive Date: 20250520
  Receipt Date: 20250520
  Transmission Date: 20250717
  Serious: Yes (Death, Hospitalization, Other)
  Sender: ROCHE
  Company Number: CH-ROCHE-10000281396

PATIENT

DRUGS (10)
  1. RITUXIMAB [Suspect]
     Active Substance: RITUXIMAB
     Indication: Systemic scleroderma
     Route: 042
  2. METHOTREXATE [Concomitant]
     Active Substance: METHOTREXATE
  3. AZATHIOPRINE [Concomitant]
     Active Substance: AZATHIOPRINE
  4. PREDNISONE [Concomitant]
     Active Substance: PREDNISONE
  5. MYCOPHENOLATE MOFETIL [Concomitant]
     Active Substance: MYCOPHENOLATE MOFETIL
  6. CYCLOPHOSPHAMIDE [Concomitant]
     Active Substance: CYCLOPHOSPHAMIDE
  7. SULFASALAZINE [Concomitant]
     Active Substance: SULFASALAZINE
  8. LEFLUNOMIDE [Concomitant]
     Active Substance: LEFLUNOMIDE
  9. COLCHICINE [Concomitant]
     Active Substance: COLCHICINE
  10. TACROLIMUS [Concomitant]
     Active Substance: TACROLIMUS

REACTIONS (13)
  - Pneumonia [Fatal]
  - Infection [Unknown]
  - Serum sickness [Unknown]
  - Skin infection [Unknown]
  - Pneumonia [Unknown]
  - Off label use [Fatal]
  - Chills [Unknown]
  - Fatigue [Unknown]
  - Nausea [Unknown]
  - Hypersensitivity [Unknown]
  - Cardiac disorder [Unknown]
  - Renal disorder [Unknown]
  - Pulmonary fibrosis [Unknown]
